FAERS Safety Report 8028418-9 (Version None)
Quarter: 2012Q1

REPORT INFORMATION
  Report Type: 
  Country: None (occurrence: None)
  Receive Date: 20120106
  Receipt Date: 20110801
  Transmission Date: 20120608
  Serious: No
  Sender: FDA-Public Use
  Company Number: US-MYLANLABS-2011S1016107

PATIENT
  Sex: Male

DRUGS (1)
  1. FINASTERIDE [Suspect]
     Indication: TOURETTE'S DISORDER
     Route: 048
     Dates: start: 20070101, end: 20110601

REACTIONS (1)
  - THERAPEUTIC RESPONSE UNEXPECTED [None]
